FAERS Safety Report 7725884-0 (Version None)
Quarter: 2011Q3

REPORT INFORMATION
  Report Type: 
  Country: None (occurrence: None)
  Receive Date: 20110830
  Receipt Date: 20110815
  Transmission Date: 20111222
  Serious: Yes (Hospitalization)
  Sender: FDA-Public Use
  Company Number: JPI-P-015926

PATIENT
  Age: 60 Year
  Sex: Female
  Weight: 67.586 kg

DRUGS (11)
  1. LORAZEPAM [Suspect]
     Indication: ANXIETY
     Dosage: 2 MG (1 MG, 2 IN 1 D), ORAL (TAPERING DOSE DOWN 1/4 TABLET/2 DAYS) 1 MG (1 MG, 1 IN 1 D)
     Route: 048
     Dates: start: 20100701, end: 20110703
  2. LORAZEPAM [Suspect]
     Indication: ANXIETY
     Dosage: 2 MG (1 MG, 2 IN 1 D), ORAL (TAPERING DOSE DOWN 1/4 TABLET/2 DAYS) 1 MG (1 MG, 1 IN 1 D)
     Route: 048
     Dates: start: 20110704, end: 20110714
  3. LORAZEPAM [Suspect]
     Indication: ANXIETY
     Dosage: 2 MG (1 MG, 2 IN 1 D), ORAL (TAPERING DOSE DOWN 1/4 TABLET/2 DAYS) 1 MG (1 MG, 1 IN 1 D)
     Route: 048
     Dates: start: 20110717
  4. XYREM [Suspect]
     Indication: NARCOLEPSY
     Dosage: 4.5 GM (2.25 GM, 2 IN 1 D) , ORAL) 9 GM (4.5 GM, 2 IN 1 D), ORAL
     Route: 048
     Dates: start: 20070830
  5. XYREM [Suspect]
     Indication: SOMNOLENCE
     Dosage: 4.5 GM (2.25 GM, 2 IN 1 D) , ORAL) 9 GM (4.5 GM, 2 IN 1 D), ORAL
     Route: 048
     Dates: start: 20070830
  6. XYREM [Suspect]
     Indication: FIBROMYALGIA
     Dosage: 4.5 GM (2.25 GM, 2 IN 1 D) , ORAL) 9 GM (4.5 GM, 2 IN 1 D), ORAL
     Route: 048
     Dates: start: 20070830
  7. XYREM [Suspect]
     Indication: NARCOLEPSY
     Dosage: 4.5 GM (2.25 GM, 2 IN 1 D) , ORAL) 9 GM (4.5 GM, 2 IN 1 D), ORAL
     Route: 048
     Dates: start: 20051013, end: 20070829
  8. XYREM [Suspect]
     Indication: SOMNOLENCE
     Dosage: 4.5 GM (2.25 GM, 2 IN 1 D) , ORAL) 9 GM (4.5 GM, 2 IN 1 D), ORAL
     Route: 048
     Dates: start: 20051013, end: 20070829
  9. XYREM [Suspect]
     Indication: FIBROMYALGIA
     Dosage: 4.5 GM (2.25 GM, 2 IN 1 D) , ORAL) 9 GM (4.5 GM, 2 IN 1 D), ORAL
     Route: 048
     Dates: start: 20051013, end: 20070829
  10. PAROXETINE HCL [Concomitant]
  11. ESTRADIOL [Concomitant]

REACTIONS (7)
  - NASOPHARYNGITIS [None]
  - DEATH OF RELATIVE [None]
  - CONDITION AGGRAVATED [None]
  - HYPERTENSION [None]
  - ANXIETY [None]
  - HEADACHE [None]
  - DRUG INEFFECTIVE [None]
